FAERS Safety Report 5398683-5 (Version None)
Quarter: 2007Q3

REPORT INFORMATION
  Report Type: 
  Country: None (occurrence: None)
  Receive Date: 20070726
  Receipt Date: 20061110
  Transmission Date: 20080115
  Serious: No
  Sender: FDA-Public Use
  Company Number: US-AMGEN-US199973

PATIENT
  Sex: Male

DRUGS (10)
  1. EPOGEN [Suspect]
     Indication: DIALYSIS
     Route: 065
     Dates: start: 20000101, end: 20061026
  2. FERRLECIT [Concomitant]
     Route: 065
     Dates: start: 20061002, end: 20061006
  3. COUMADIN [Concomitant]
     Route: 065
  4. PREDNISONE TAB [Concomitant]
     Route: 065
  5. ZEMPLAR [Concomitant]
     Route: 065
  6. MEGACE [Concomitant]
     Route: 065
  7. NEPHRO-CAPS [Concomitant]
     Route: 065
  8. PHOSLO [Concomitant]
     Route: 065
  9. PEPCID [Concomitant]
     Route: 065
  10. CATAPRES [Concomitant]
     Route: 062

REACTIONS (1)
  - THERAPEUTIC RESPONSE DECREASED [None]
